FAERS Safety Report 8455312-1 (Version None)
Quarter: 2012Q2

REPORT INFORMATION
  Report Type: 
  Country: None (occurrence: None)
  Receive Date: 20120621
  Receipt Date: 20120618
  Transmission Date: 20120825
  Serious: Yes (Hospitalization)
  Sender: FDA-Public Use
  Company Number: US-PFIZER INC-2012147022

PATIENT
  Sex: Male

DRUGS (2)
  1. TRILEPTAL [Concomitant]
     Indication: BIPOLAR DISORDER
     Dosage: 600 MG, 2X/DAY
  2. GEODON [Suspect]
     Indication: BIPOLAR DISORDER
     Dosage: 20 MG, DAILY

REACTIONS (2)
  - MENTAL IMPAIRMENT [None]
  - ABNORMAL DREAMS [None]
